FAERS Safety Report 8598717-0 (Version None)
Quarter: 2012Q3

REPORT INFORMATION
  Report Type: 
  Country: None (occurrence: None)
  Receive Date: 20120816
  Receipt Date: 20120807
  Transmission Date: 20120928
  Serious: Yes (Other)
  Sender: FDA-Public Use
  Company Number: US-ASTRAZENECA-2010SE28997

PATIENT
  Age: 63 Year
  Sex: Female
  Weight: 89.8 kg

DRUGS (5)
  1. ASPIRIN [Concomitant]
     Dosage: 81MG
  2. COUMADIN [Concomitant]
     Dosage: 5 MG WEEK
  3. CRESTOR [Suspect]
     Indication: HYPERCHOLESTEROLAEMIA
     Route: 048
  4. PLAQUENIL [Concomitant]
  5. AROMASIN [Concomitant]
     Indication: BREAST CANCER
     Dosage: 25 MG

REACTIONS (5)
  - ANTIPHOSPHOLIPID ANTIBODIES [None]
  - DRUG DOSE OMISSION [None]
  - THROMBOSIS [None]
  - SYSTEMIC LUPUS ERYTHEMATOSUS [None]
  - BREAST CANCER [None]
